FAERS Safety Report 11614936 (Version 1)
Quarter: 2015Q4

REPORT INFORMATION
  Report Type: Spontaneous
  Country: NG (occurrence: NG)
  Receive Date: 20151009
  Receipt Date: 20151009
  Transmission Date: 20160304
  Serious: Yes (Life-Threatening, Other)
  Sender: FDA-Public Use
  Company Number: NG-FRESENIUS KABI-FK201504826

PATIENT
  Age: 27 Year
  Sex: Female

DRUGS (1)
  1. BUPIVACAINE (MANUFACTURER UNKNOWN) [Suspect]
     Active Substance: BUPIVACAINE
     Indication: SPINAL ANAESTHESIA
     Route: 065

REACTIONS (3)
  - Cardiac arrest [Recovered/Resolved]
  - Brief psychotic disorder, with postpartum onset [Recovered/Resolved]
  - Seizure [Recovered/Resolved]
